FAERS Safety Report 14896361 (Version 4)
Quarter: 2022Q4

REPORT INFORMATION
  Report Type: Spontaneous
  Country: US (occurrence: US)
  Receive Date: 20180515
  Receipt Date: 20221012
  Transmission Date: 20230113
  Serious: No
  Sender: FDA-Public Use
  Company Number: US-CELLTRION INC.-2018US019258

PATIENT

DRUGS (8)
  1. INFLECTRA [Suspect]
     Active Substance: INFLIXIMAB-DYYB
     Indication: Psoriatic arthropathy
     Dosage: 600 MG, UNK
     Route: 065
     Dates: start: 20180411, end: 20180411
  2. INFLECTRA [Suspect]
     Active Substance: INFLIXIMAB-DYYB
     Indication: Rheumatoid arthritis
     Dosage: UNK
     Route: 065
     Dates: start: 20180607, end: 20180607
  3. INFLECTRA [Suspect]
     Active Substance: INFLIXIMAB-DYYB
     Dosage: UNK, INFUSION GIVEN BETWEEN 6 AND 8 WEEKS
     Route: 065
  4. TRAMADOL [Concomitant]
     Active Substance: TRAMADOL
     Dosage: 50 MG, CAN TAKE UP TO 3X A DAY BUT NORMALLY TAKE IT TWICE
  5. BUPROPION HYDROCHLORIDE XL [Concomitant]
     Active Substance: BUPROPION HYDROCHLORIDE
     Dosage: 300 MG IN THE MORNING AND THE 150 MG IN THE EVENING BY MOUTH
     Route: 048
  6. CEFIXIME [Concomitant]
     Active Substance: CEFIXIME
     Dosage: UNK, TWICE A DAY, SHE GUESSES THE DOSE IS 30 OR 40 MG BY MOUTH
     Route: 048
  7. MELOXICAM [Concomitant]
     Active Substance: MELOXICAM
     Dosage: 15 MG ONCE A DAY BY MOUTH
     Route: 048
  8. PREDNISONE [Concomitant]
     Active Substance: PREDNISONE
     Dosage: 5 MG TWICE A DAY

REACTIONS (4)
  - Arthralgia [Unknown]
  - Product prescribing issue [Unknown]
  - Product use issue [Unknown]
  - Product dose omission issue [Unknown]

NARRATIVE: CASE EVENT DATE: 20190615
